FAERS Safety Report 8390856-2 (Version None)
Quarter: 2012Q2

REPORT INFORMATION
  Report Type: 
  Country: None (occurrence: None)
  Receive Date: 20120529
  Receipt Date: 20120518
  Transmission Date: 20120825
  Serious: Yes (Hospitalization, Other)
  Sender: FDA-Public Use
  Company Number: JP-VERTEX PHARMACEUTICALS INC.-AE-2012-007648

PATIENT
  Age: 68 Year
  Sex: Male

DRUGS (13)
  1. TELAVIC (TELAPREVIR) [Suspect]
     Indication: HEPATITIS C
     Route: 048
     Dates: start: 20120322, end: 20120417
  2. MUCOSTA [Concomitant]
     Route: 048
     Dates: start: 20120327
  3. RIBAVIRIN [Concomitant]
     Indication: HEPATITIS C
     Route: 048
     Dates: start: 20120322, end: 20120417
  4. RIBAVIRIN [Concomitant]
     Route: 048
     Dates: start: 20120503
  5. TELAVIC (TELAPREVIR) [Suspect]
     Route: 048
     Dates: start: 20120503
  6. MARZULENE-S [Concomitant]
     Route: 048
     Dates: start: 20120327
  7. ADALAT CC [Concomitant]
     Route: 048
     Dates: start: 20120327, end: 20120418
  8. NEXIUM [Concomitant]
     Route: 048
     Dates: start: 20120327
  9. PEGINTERFERON ALFA-2B [Concomitant]
     Indication: HEPATITIS C
     Route: 051
     Dates: start: 20120322
  10. RIBAVIRIN [Concomitant]
     Route: 048
     Dates: start: 20120418
  11. DIOVAN [Concomitant]
     Route: 048
     Dates: start: 20120327
  12. TELAVIC (TELAPREVIR) [Suspect]
     Route: 048
     Dates: start: 20120418
  13. AZUNOL GARGLE LIQUID [Concomitant]
     Dates: start: 20120425

REACTIONS (2)
  - HAEMOGLOBIN DECREASED [None]
  - WHITE BLOOD CELL COUNT DECREASED [None]
